FAERS Safety Report 8968274 (Version 1)
Quarter: 2012Q4

REPORT INFORMATION
  Report Type: Spontaneous
  Country: US (occurrence: None)
  Receive Date: 20121213
  Receipt Date: 20121213
  Transmission Date: 20130627
  Serious: No
  Sender: FDA-Public Use
  Company Number: None

PATIENT
  Age: 63 Year
  Sex: Female
  Weight: 100 kg

DRUGS (1)
  1. ERGOCALCIFEROL [Suspect]
     Indication: NUTRITIONAL SUPPLEMENT
     Route: 048
     Dates: start: 20120331, end: 20120806

REACTIONS (1)
  - Headache [None]
